FAERS Safety Report 9222595 (Version 2)
Quarter: 2013Q2

REPORT INFORMATION
  Report Type: Report from Study
  Country: AT (occurrence: AT)
  Receive Date: 20130410
  Receipt Date: 20130422
  Transmission Date: 20140414
  Serious: Yes (Death)
  Sender: FDA-Public Use
  Company Number: AT-ROCHE-1208904

PATIENT
  Sex: 0

DRUGS (1)
  1. ALTEPLASE [Suspect]
     Indication: CARDIAC ARREST
     Dosage: FRONT LOAD ADMINISTRATION
     Route: 065

REACTIONS (1)
  - Aortic aneurysm rupture [Fatal]
